FAERS Safety Report 8877092 (Version 1)
Quarter: 2012Q4

REPORT INFORMATION
  Report Type: 
  Country: AU (occurrence: AU)
  Receive Date: 20121023
  Receipt Date: 20121023
  Transmission Date: 20130627
  Serious: Yes (Hospitalization, Other)
  Sender: FDA-Public Use
  Company Number: AU-ABBOTT-12P-008-0977695-00

PATIENT
  Sex: Female
  Weight: 58 kg

DRUGS (5)
  1. HUMIRA [Suspect]
     Indication: RHEUMATOID ARTHRITIS
  2. ANTI-INFLAMMATORY [Concomitant]
     Indication: PRODUCT USED FOR UNKNOWN INDICATION
  3. PREDNISONE [Concomitant]
     Indication: PRODUCT USED FOR UNKNOWN INDICATION
  4. METHOTREXATE [Concomitant]
     Indication: PRODUCT USED FOR UNKNOWN INDICATION
  5. SALAZOPYRIN [Concomitant]
     Indication: PRODUCT USED FOR UNKNOWN INDICATION

REACTIONS (11)
  - Surgery [Unknown]
  - Infection [Unknown]
  - Adverse drug reaction [Unknown]
  - Vulvovaginal candidiasis [Unknown]
  - Vulvovaginal pruritus [Unknown]
  - Dysgeusia [Unknown]
  - Eye infection [Unknown]
  - Eye pruritus [Unknown]
  - Sinusitis [Unknown]
  - Cellulitis orbital [Unknown]
  - Snoring [Unknown]
